FAERS Safety Report 18303289 (Version 2)
Quarter: 2020Q4

REPORT INFORMATION
  Report Type: Spontaneous
  Country: TR (occurrence: TR)
  Receive Date: 20200923
  Receipt Date: 20201023
  Transmission Date: 20210113
  Serious: Yes (Other)
  Sender: FDA-Public Use
  Company Number: TR-PFIZER INC-2020365825

PATIENT
  Age: 68 Year
  Sex: Male
  Weight: 74 kg

DRUGS (1)
  1. VIAGRA [Suspect]
     Active Substance: SILDENAFIL CITRATE
     Indication: ERECTILE DYSFUNCTION
     Dosage: 100 MG, 1X/DAY
     Dates: start: 20200918, end: 20200918

REACTIONS (3)
  - Testicular rupture [Unknown]
  - Feeling abnormal [Unknown]
  - Testicular haemorrhage [Recovered/Resolved]

NARRATIVE: CASE EVENT DATE: 20200918
